FAERS Safety Report 7242276-1 (Version None)
Quarter: 2011Q1

REPORT INFORMATION
  Report Type: 
  Country: None (occurrence: None)
  Receive Date: 20110125
  Receipt Date: 20110113
  Transmission Date: 20110831
  Serious: Yes (Other)
  Sender: FDA-Public Use
  Company Number: DE-RANBAXY-2011US-41099

PATIENT

DRUGS (8)
  1. PROTONIX [Suspect]
     Indication: GASTROOESOPHAGEAL REFLUX DISEASE
     Dosage: 40 MG, QD
     Route: 048
  2. METOPROLOL [Suspect]
     Indication: HYPERTENSION
     Dosage: 50 MG, QD
     Route: 048
  3. SILVERDIN [Suspect]
     Indication: THERMAL BURN
     Dosage: UNK
     Route: 061
     Dates: start: 20091021, end: 20091201
  4. ASPIRIN [Suspect]
     Indication: CARDIAC DISORDER
     Dosage: 325 MG, QD
     Route: 048
  5. CRESTOR [Suspect]
     Indication: BLOOD CHOLESTEROL INCREASED
     Dosage: 10 MG, QD
     Route: 048
  6. METAMUCIL-2 [Suspect]
     Indication: CONSTIPATION
     Dosage: 2 DF, UNK
     Route: 048
  7. LISINOPRIL [Suspect]
     Indication: HYPERTENSION
     Dosage: 10 MG, QD
     Route: 048
  8. PLAVIX [Suspect]
     Indication: CARDIAC DISORDER
     Dosage: 75 MG, QD
     Route: 048

REACTIONS (5)
  - CONDITION AGGRAVATED [None]
  - DRUG INEFFECTIVE [None]
  - HYPERSENSITIVITY [None]
  - IMPAIRED HEALING [None]
  - THERMAL BURN [None]
